FAERS Safety Report 9204764 (Version 2)
Quarter: 2013Q2

REPORT INFORMATION
  Report Type: Spontaneous
  Country: US (occurrence: US)
  Receive Date: 20130402
  Receipt Date: 20130611
  Transmission Date: 20140414
  Serious: Yes (Hospitalization)
  Sender: FDA-Public Use
  Company Number: US-GLAXOSMITHKLINE-A1017304A

PATIENT
  Sex: Female

DRUGS (6)
  1. FLOVENT [Suspect]
     Indication: ASTHMA
     Route: 055
  2. METFORMIN [Concomitant]
  3. LANTUS [Concomitant]
  4. GABAPENTIN [Concomitant]
  5. THYROID MEDICATION [Concomitant]
  6. HCTZ [Concomitant]

REACTIONS (4)
  - Pneumonia [Recovered/Resolved]
  - Asthma [Recovered/Resolved]
  - Ear infection [Recovered/Resolved]
  - Sinusitis [Recovered/Resolved]
